FAERS Safety Report 6400561-7 (Version None)
Quarter: 2009Q4

REPORT INFORMATION
  Report Type: 
  Country: None (occurrence: None)
  Receive Date: 20091013
  Receipt Date: 20091013
  Transmission Date: 20100525
  Serious: Yes (Hospitalization)
  Sender: FDA-Public Use
  Company Number: None

PATIENT
  Age: 44 Year
  Sex: Female
  Weight: 70.7611 kg

DRUGS (2)
  1. AVELOX [Suspect]
     Indication: SINUSITIS
     Dates: start: 20090911, end: 20091007
  2. AVELOX [Suspect]
     Indication: SINUSITIS
     Dates: start: 20090920, end: 20091007

REACTIONS (11)
  - ANXIETY [None]
  - DYSPNOEA [None]
  - ERYTHEMA [None]
  - FEELING ABNORMAL [None]
  - FEELING HOT [None]
  - HEART RATE INCREASED [None]
  - HOT FLUSH [None]
  - HYPERTENSION [None]
  - INFLUENZA LIKE ILLNESS [None]
  - PRURITUS [None]
  - SINUSITIS [None]
